FAERS Safety Report 4759750-X (Version None)
Quarter: 2005Q3

REPORT INFORMATION
  Report Type: 
  Country: None (occurrence: None)
  Receive Date: 20050826
  Receipt Date: 20050713
  Transmission Date: 20060218
  Serious: No
  Sender: FDA-Public Use
  Company Number: 215347

PATIENT
  Age: 31 Year
  Sex: Female
  Weight: 86.2 kg

DRUGS (2)
  1. RAPTIVA [Suspect]
     Indication: PSORIASIS
     Dosage: 0.7 MG/KG, 1/WEEK, SUBCUTANEOUS
     Route: 058
     Dates: start: 20031230
  2. DEPO-PROVERA SUSPENSION/INJ [Concomitant]

REACTIONS (2)
  - FIBROMYALGIA [None]
  - WEIGHT INCREASED [None]
